FAERS Safety Report 4810185-0 (Version None)
Quarter: 2005Q4

REPORT INFORMATION
  Report Type: 
  Country: None (occurrence: None)
  Receive Date: 20051025
  Receipt Date: 20051025
  Transmission Date: 20060501
  Serious: Yes (Life-Threatening, Hospitalization, Other)
  Sender: FDA-Public Use
  Company Number: None

PATIENT
  Age: 55 Year
  Sex: Male
  Weight: 67.8 kg

DRUGS (8)
  1. GEMFIBROZIL [Suspect]
     Indication: HYPERLIPIDAEMIA
     Dosage: BID PO [ MOTHS X LITTLE ROCK]
     Route: 048
  2. VYTORIN [Suspect]
     Dosage: DAILY PO [ LITTLE ROCK]
     Route: 048
     Dates: start: 20050620
  3. PLAVIX [Concomitant]
  4. METHADONE [Concomitant]
  5. ASPIRIN [Concomitant]
  6. CITALOPRAM [Concomitant]
  7. METOPROLOL [Concomitant]
  8. ISO MONOTATRATE [Concomitant]

REACTIONS (2)
  - RENAL FAILURE CHRONIC [None]
  - RHABDOMYOLYSIS [None]
